APPROVED DRUG PRODUCT: DUOPA
Active Ingredient: CARBIDOPA; LEVODOPA
Strength: 4.63MG/ML;20MG/ML
Dosage Form/Route: SUSPENSION;ENTERAL
Application: N203952 | Product #001
Applicant: ABBVIE INC
Approved: Jan 9, 2015 | RLD: Yes | RS: Yes | Type: RX